FAERS Safety Report 17481895 (Version 2)
Quarter: 2020Q1

REPORT INFORMATION
  Report Type: Spontaneous
  Country: RO (occurrence: RO)
  Receive Date: 20200302
  Receipt Date: 20200311
  Transmission Date: 20200409
  Serious: Yes (Other)
  Sender: FDA-Public Use
  Company Number: RO-ABBVIE-20K-135-3300442-00

PATIENT
  Age: 62 Year
  Sex: Female

DRUGS (2)
  1. IMBRUVICA [Suspect]
     Active Substance: IBRUTINIB
     Indication: CHRONIC LYMPHOCYTIC LEUKAEMIA
     Route: 048
  2. IMBRUVICA [Suspect]
     Active Substance: IBRUTINIB
     Route: 048

REACTIONS (4)
  - Abdominal lymphadenopathy [Unknown]
  - Splenomegaly [Unknown]
  - Lung cancer metastatic [Unknown]
  - Congenital thrombocyte disorder [Unknown]
